FAERS Safety Report 18689116 (Version 1)
Quarter: 2020Q4

REPORT INFORMATION
  Report Type: Spontaneous
  Country: US (occurrence: US)
  Receive Date: 20201231
  Receipt Date: 20201231
  Transmission Date: 20210114
  Serious: Yes (Death)
  Sender: FDA-Public Use
  Company Number: US-STRIDES ARCOLAB LIMITED-2020SP016720

PATIENT
  Sex: Female

DRUGS (2)
  1. RANITIDINE. [Suspect]
     Active Substance: RANITIDINE
     Indication: PRODUCT USED FOR UNKNOWN INDICATION
     Dosage: UNK (RANITIDINE)
     Route: 065
     Dates: start: 200101, end: 201808
  2. RANITIDINE. [Suspect]
     Active Substance: RANITIDINE
     Dosage: UNK (ZANTAC)
     Route: 065
     Dates: start: 200101, end: 201808

REACTIONS (8)
  - Gastric cancer [Fatal]
  - Brain neoplasm malignant [Fatal]
  - Hepatic cancer [Fatal]
  - Lung neoplasm malignant [Fatal]
  - Throat cancer [Fatal]
  - Bone cancer [Fatal]
  - Nasal cavity cancer [Fatal]
  - Oesophageal carcinoma [Fatal]

NARRATIVE: CASE EVENT DATE: 201811
